FAERS Safety Report 15325795 (Version 1)
Quarter: 2018Q3

REPORT INFORMATION
  Report Type: Spontaneous
  Country: US (occurrence: US)
  Receive Date: 20180822
  Receipt Date: 20180822
  Transmission Date: 20181010
  Serious: Yes (Other)
  Sender: FDA-Public Use
  Company Number: None

PATIENT
  Age: 64 Year
  Sex: Male
  Weight: 130.5 kg

DRUGS (18)
  1. VITAMIN B12 [Concomitant]
     Active Substance: CYANOCOBALAMIN
  2. RYVENT [Suspect]
     Active Substance: CARBINOXAMINE MALEATE
     Indication: HYPERSENSITIVITY
     Dosage: ?          QUANTITY:1 TABLET(S);?
     Route: 048
     Dates: start: 20180801, end: 20180816
  3. PANTOPRAZOLE [Concomitant]
     Active Substance: PANTOPRAZOLE
  4. ROPRINIROLE [Concomitant]
  5. MONTELUKAST NA [Concomitant]
  6. VITAMIN D3 [Concomitant]
     Active Substance: CHOLECALCIFEROL
  7. FISH OIL [Concomitant]
     Active Substance: FISH OIL
  8. ADVAIR HFA [Concomitant]
     Active Substance: FLUTICASONE PROPIONATE\SALMETEROL XINAFOATE
  9. IPRATROPIUM BROMIDE. [Concomitant]
     Active Substance: IPRATROPIUM BROMIDE
  10. ASPIRIN. [Concomitant]
     Active Substance: ASPIRIN
  11. FLECAINIDE [Concomitant]
     Active Substance: FLECAINIDE
  12. LUTEIN + ZEAXANTHIN [Concomitant]
  13. SERTRALINE [Concomitant]
     Active Substance: SERTRALINE HYDROCHLORIDE
  14. MENS 50+ MULTI VITAMIN [Concomitant]
  15. VITAMIN E [Concomitant]
     Active Substance: .ALPHA.-TOCOPHEROL
  16. LYRICA [Concomitant]
     Active Substance: PREGABALIN
  17. DILTIAZEM. [Concomitant]
     Active Substance: DILTIAZEM
  18. FOLIC ACID. [Concomitant]
     Active Substance: FOLIC ACID

REACTIONS (6)
  - Nervousness [None]
  - Sleep apnoea syndrome [None]
  - Mood swings [None]
  - Aggression [None]
  - Irritability [None]
  - Atrial fibrillation [None]

NARRATIVE: CASE EVENT DATE: 20180812
